FAERS Safety Report 7604675-5 (Version None)
Quarter: 2011Q3

REPORT INFORMATION
  Report Type: 
  Country: None (occurrence: None)
  Receive Date: 20110712
  Receipt Date: 20110707
  Transmission Date: 20111222
  Serious: Yes (Death)
  Sender: FDA-Public Use
  Company Number: PHHY2011DK60993

PATIENT
  Age: 77 Year
  Sex: Female

DRUGS (3)
  1. AMLODIPINE [Suspect]
     Indication: HYPERTENSION
  2. FLUCONAZOLE [Interacting]
  3. VENLAFAXINE [Concomitant]
     Indication: DEPRESSION

REACTIONS (2)
  - DRUG INTERACTION [None]
  - ASPHYXIA [None]
